FAERS Safety Report 7770291-8 (Version None)
Quarter: 2011Q3

REPORT INFORMATION
  Report Type: 
  Country: None (occurrence: None)
  Receive Date: 20110922
  Receipt Date: 20100819
  Transmission Date: 20111222
  Serious: Yes (Other)
  Sender: FDA-Public Use
  Company Number: US-ASTRAZENECA-2010SE39040

PATIENT
  Sex: Female
  Weight: 94.3 kg

DRUGS (9)
  1. SEROQUEL [Suspect]
     Indication: POST-TRAUMATIC STRESS DISORDER
     Route: 048
  2. SEROQUEL [Suspect]
     Dosage: 150 MG TABLET CUTTING HALF OR LESS
     Route: 048
  3. PROPRANOLOL [Concomitant]
  4. SEROQUEL [Suspect]
     Dosage: 150 MG TABLET CUTTING HALF OR LESS
     Route: 048
  5. CELEXA [Concomitant]
  6. SEROQUEL [Suspect]
     Indication: ANXIETY
     Route: 048
  7. SUBOXONE [Concomitant]
  8. SEROQUEL [Suspect]
     Dosage: 150 MG TABLET CUTTING HALF OR LESS
     Route: 048
  9. SEROQUEL [Suspect]
     Indication: INSOMNIA
     Route: 048

REACTIONS (3)
  - CONVULSION [None]
  - WRONG TECHNIQUE IN DRUG USAGE PROCESS [None]
  - DRUG DOSE OMISSION [None]
